FAERS Safety Report 14413368 (Version 1)
Quarter: 2018Q1

REPORT INFORMATION
  Report Type: Report from Study
  Country: US (occurrence: US)
  Receive Date: 20180119
  Receipt Date: 20180119
  Transmission Date: 20180509
  Serious: Yes (Hospitalization, Other)
  Sender: FDA-Public Use
  Company Number: US-TEVA-813664USA

PATIENT
  Age: 53 Year
  Sex: Female

DRUGS (19)
  1. COPAXONE [Suspect]
     Active Substance: GLATIRAMER ACETATE
     Dosage: PRE FILLED SYRINGE
     Route: 058
     Dates: start: 20130910
  2. ZOLPIDEM [Concomitant]
     Active Substance: ZOLPIDEM\ZOLPIDEM TARTRATE
  3. COPAXONE [Suspect]
     Active Substance: GLATIRAMER ACETATE
     Indication: MULTIPLE SCLEROSIS
     Dosage: PRE FILLED SYRINGE
     Route: 058
     Dates: start: 20150416
  4. BREO ELLIPTA [Concomitant]
     Active Substance: FLUTICASONE FUROATE\VILANTEROL TRIFENATATE
     Dosage: 100-25
  5. BACLOFEN. [Concomitant]
     Active Substance: BACLOFEN
  6. OMEPRAZOL [Concomitant]
     Active Substance: OMEPRAZOLE
  7. DIVALPROEX [Concomitant]
     Active Substance: DIVALPROEX SODIUM
  8. VENTOLIN [Concomitant]
     Active Substance: ALBUTEROL SULFATE
  9. ONDANSETRON [Concomitant]
     Active Substance: ONDANSETRON
     Dosage: 4MG/5ML
  10. DIPHENHYDRAMINE/ATROPHINE [Concomitant]
  11. ARIPIPRAZOLE. [Concomitant]
     Active Substance: ARIPIPRAZOLE
  12. LISINOPRIL/HYDROCHLORTHIAZIDE [Concomitant]
  13. GABAPENTIN. [Concomitant]
     Active Substance: GABAPENTIN
  14. OXYBUTYNIN. [Concomitant]
     Active Substance: OXYBUTYNIN CHLORIDE
  15. DULOXETINE. [Concomitant]
     Active Substance: DULOXETINE
  16. CARISOPRODOL. [Concomitant]
     Active Substance: CARISOPRODOL
  17. OXYCODONE [Concomitant]
     Active Substance: OXYCODONE
  18. SERTRALINE [Concomitant]
     Active Substance: SERTRALINE HYDROCHLORIDE
  19. NICOTINE TD DIS [Concomitant]
     Dosage: 21MG/24H

REACTIONS (7)
  - Dialysis [Not Recovered/Not Resolved]
  - Depression [Not Recovered/Not Resolved]
  - Fatigue [Not Recovered/Not Resolved]
  - Intervertebral disc compression [Not Recovered/Not Resolved]
  - Blindness unilateral [Not Recovered/Not Resolved]
  - Pain [Not Recovered/Not Resolved]
  - Multiple sclerosis [Not Recovered/Not Resolved]

NARRATIVE: CASE EVENT DATE: 20170927
